FAERS Safety Report 15138647 (Version 1)
Quarter: 2018Q3

REPORT INFORMATION
  Report Type: Spontaneous
  Country: GB (occurrence: GB)
  Receive Date: 20180713
  Receipt Date: 20180713
  Transmission Date: 20181010
  Serious: Yes (Other)
  Sender: FDA-Public Use
  Company Number: GB-TEVA-2018-GB-924986

PATIENT
  Age: 50 Year
  Sex: Female
  Weight: 64 kg

DRUGS (2)
  1. NITROFURANTOIN. [Suspect]
     Active Substance: NITROFURANTOIN
     Route: 065
     Dates: start: 20180604
  2. OMEPRAZOLE. [Concomitant]
     Active Substance: OMEPRAZOLE
     Dosage: 1 DOSAGE FORMS DAILY; TO REDUCE STOMACH ACID
     Route: 065
     Dates: start: 20170116

REACTIONS (3)
  - Rash erythematous [Recovered/Resolved]
  - Pain of skin [Unknown]
  - Flushing [Unknown]

NARRATIVE: CASE EVENT DATE: 20180604
